FAERS Safety Report 4618912-2 (Version None)
Quarter: 2005Q1

REPORT INFORMATION
  Report Type: 
  Country: None (occurrence: None)
  Receive Date: 20050323
  Receipt Date: 20050315
  Transmission Date: 20050727
  Serious: Yes (Death, Hospitalization)
  Sender: FDA-Public Use
  Company Number: 163-20785-05030368

PATIENT
  Age: 74 Year
  Sex: Male
  Weight: 84.8226 kg

DRUGS (8)
  1. VINCRISTINE SULFATE [Suspect]
     Indication: MYELODYSPLASTIC SYNDROME
     Dosage: 100 MG, DAILY, ORAL
     Route: 048
     Dates: start: 20041129, end: 20050105
  2. TRISENOX [Suspect]
     Indication: MYELODYSPLASTIC SYNDROME
     Dosage: 21 MG, TWICE WEEKLY, INTRAVENOUS
     Route: 042
     Dates: start: 20041129, end: 20041230
  3. FILGRASTIM (FILGRASTIM) [Concomitant]
  4. EPOGEN [Concomitant]
  5. PYRIDOXINE (PYRIDOXINE) [Concomitant]
  6. PROPRANOLOL [Concomitant]
  7. GLIPIZIDE [Concomitant]
  8. FAMOTIDINE [Concomitant]

REACTIONS (4)
  - ANAEMIA [None]
  - CARDIAC FAILURE [None]
  - DRUG TOXICITY [None]
  - ESCHERICHIA BACTERAEMIA [None]
